FAERS Safety Report 4501247-6 (Version None)
Quarter: 2004Q3

REPORT INFORMATION
  Report Type: 
  Country: None (occurrence: None)
  Receive Date: 20040927
  Receipt Date: 20040817
  Transmission Date: 20050211
  Serious: No
  Sender: FDA-Public Use
  Company Number: USA040875867

PATIENT
  Age: 16 Year

DRUGS (2)
  1. STRATTERA [Suspect]
     Indication: ATTENTION DEFICIT/HYPERACTIVITY DISORDER
     Dosage: 40 MG/1 DAY
     Dates: start: 20040801, end: 20040801
  2. WELLBUTRIN [Concomitant]

REACTIONS (4)
  - AGITATION [None]
  - ANXIETY [None]
  - FEELING JITTERY [None]
  - MYDRIASIS [None]
